FAERS Safety Report 7136166-2 (Version None)
Quarter: 2010Q4

REPORT INFORMATION
  Report Type: 
  Country: None (occurrence: None)
  Receive Date: 20101206
  Receipt Date: 20070207
  Transmission Date: 20110411
  Serious: Yes (Death)
  Sender: FDA-Public Use
  Company Number: US-ACTELION-A-NJ2007-14315

PATIENT

DRUGS (11)
  1. ILOPROST INHALATION SOLUTION 5UG US [Suspect]
     Indication: PULMONARY HYPERTENSION
     Dosage: 5 UG 6XD
     Route: 055
     Dates: start: 20060613, end: 20070131
  2. POTASSIUM CHLORIDE [Concomitant]
  3. LASIX [Concomitant]
  4. LIPITOR [Concomitant]
  5. ASPIRIN [Concomitant]
  6. NIFEDIPINE [Concomitant]
  7. PENTASA [Concomitant]
  8. PRILOSEC [Concomitant]
  9. QUINAPRIL [Concomitant]
  10. SILDENAFIL CITRATE [Concomitant]
  11. SYNTHROID [Concomitant]

REACTIONS (1)
  - DEATH [None]
